FAERS Safety Report 15967239 (Version 1)
Quarter: 2019Q1

REPORT INFORMATION
  Report Type: Spontaneous
  Country: US (occurrence: US)
  Receive Date: 20190215
  Receipt Date: 20190215
  Transmission Date: 20190418
  Serious: No
  Sender: FDA-Public Use
  Company Number: US-SA-2019SA041108

PATIENT
  Age: 64 Year
  Sex: Female

DRUGS (1)
  1. GAVISCON [Suspect]
     Active Substance: ALUMINUM HYDROXIDE\MAGNESIUM CARBONATE
     Indication: GASTROOESOPHAGEAL REFLUX DISEASE
     Dosage: 2 UNK, PRN
     Dates: start: 2006

REACTIONS (1)
  - Therapeutic response unexpected [Unknown]
